FAERS Safety Report 5485203-X (Version None)
Quarter: 2007Q4

REPORT INFORMATION
  Report Type: 
  Country: None (occurrence: None)
  Receive Date: 20071015
  Receipt Date: 20071004
  Transmission Date: 20080405
  Serious: Yes (Other)
  Sender: FDA-Public Use
  Company Number: BR-ELI_LILLY_AND_COMPANY-BR200710000904

PATIENT
  Sex: Male
  Weight: 78 kg

DRUGS (3)
  1. ZYPREXA [Suspect]
     Indication: ABNORMAL BEHAVIOUR
     Dosage: 10 MG, DAILY (1/D)
     Route: 048
     Dates: start: 20070101
  2. DIAZEPAM [Concomitant]
     Indication: INSOMNIA
     Dosage: 10 MG, DAILY (1/D)
     Route: 065
  3. FENERGAN [Concomitant]
     Indication: PROPHYLAXIS
     Dosage: UNK, DAILY (1/D)
     Route: 048

REACTIONS (1)
  - VISUAL ACUITY REDUCED [None]
